FAERS Safety Report 4483707-X (Version None)
Quarter: 2004Q4

REPORT INFORMATION
  Report Type: 
  Country: None (occurrence: None)
  Receive Date: 20041020
  Receipt Date: 20041005
  Transmission Date: 20050328
  Serious: Yes (Death)
  Sender: FDA-Public Use
  Company Number: K200401544

PATIENT
  Age: 48 Year

DRUGS (1)
  1. MORPHINE SULFATE [Suspect]

REACTIONS (4)
  - CARDIAC ARREST [None]
  - COMPLETED SUICIDE [None]
  - OVERDOSE [None]
  - RESPIRATORY ARREST [None]
